FAERS Safety Report 13844303 (Version 1)
Quarter: 2017Q3

REPORT INFORMATION
  Report Type: Report from Study
  Country: US (occurrence: US)
  Receive Date: 20170808
  Receipt Date: 20170808
  Transmission Date: 20171127
  Serious: Yes (Death, Hospitalization)
  Sender: FDA-Public Use
  Company Number: US-ROCHE-1901789

PATIENT
  Age: 88 Year
  Sex: Female
  Weight: 61.18 kg

DRUGS (18)
  1. BEVACIZUMAB. [Suspect]
     Active Substance: BEVACIZUMAB
     Dosage: MAINTENANCE (CYCLE=21 DAYS)?ON DAY 1 OF EVERY FOURTH CYCLE BEGINNING ON CYCLE 8
     Route: 042
     Dates: start: 20161209, end: 20170117
  2. AMLODIPINE [Concomitant]
     Active Substance: AMLODIPINE BESYLATE
  3. LEVOTHYROXINE. [Concomitant]
     Active Substance: LEVOTHYROXINE
  4. SUCRALFATE. [Concomitant]
     Active Substance: SUCRALFATE
  5. ESCITALOPRAM [Concomitant]
     Active Substance: ESCITALOPRAM OXALATE
  6. ACETAMINOPHEN/HYDROCODONE [Concomitant]
     Active Substance: ACETAMINOPHEN\HYDROCODONE
  7. IPILIMUMAB [Suspect]
     Active Substance: IPILIMUMAB
     Indication: MALIGNANT MELANOMA
     Dosage: INDUCTION (CYCLE=21 DAYS)?ON DAY 1 OF CYCLES 1-4?LAST ADMINISTERED ON 19/JAN/2017?DOSE: 183 MG
     Route: 042
     Dates: start: 20170119
  8. TRAMADOL. [Concomitant]
     Active Substance: TRAMADOL
  9. IPILIMUMAB [Suspect]
     Active Substance: IPILIMUMAB
     Dosage: MAINTENANCE (CYCLE=21 DAYS)?ON DAY 1 OF EVERY FOURTH CYCLE BEGINNING ON CYCLE 8
     Route: 042
  10. OMEPRAZOLE. [Concomitant]
     Active Substance: OMEPRAZOLE
  11. LOSARTAN/HCTZ [Concomitant]
     Active Substance: HYDROCHLOROTHIAZIDE\LOSARTAN
  12. LORATADINE. [Concomitant]
     Active Substance: LORATADINE
  13. PANTOPRAZOLE [Concomitant]
     Active Substance: PANTOPRAZOLE
  14. METHOCARBAMOL. [Concomitant]
     Active Substance: METHOCARBAMOL
  15. ASPIRIN. [Concomitant]
     Active Substance: ASPIRIN
  16. BEVACIZUMAB. [Suspect]
     Active Substance: BEVACIZUMAB
     Indication: MALIGNANT MELANOMA
     Dosage: INDUCTION (CYCLE=21 DAYS)?ON DAY 1 OF CYCLES 1-4?DOSE 916 MG.
     Route: 042
     Dates: start: 20161116
  17. LABETALOL [Concomitant]
     Active Substance: LABETALOL\LABETALOL HYDROCHLORIDE
  18. ALPRAZOLAM. [Concomitant]
     Active Substance: ALPRAZOLAM

REACTIONS (6)
  - Transient ischaemic attack [Recovered/Resolved]
  - Hypertension [Unknown]
  - Lung infection [Unknown]
  - Atrial fibrillation [Unknown]
  - Cardiac arrest [Fatal]
  - Hypokalaemia [Unknown]

NARRATIVE: CASE EVENT DATE: 20170122
